FAERS Safety Report 9820629 (Version 1)
Quarter: 2014Q1

REPORT INFORMATION
  Report Type: Spontaneous
  Country: FR (occurrence: FR)
  Receive Date: 20140116
  Receipt Date: 20140116
  Transmission Date: 20141002
  Serious: Yes (Other)
  Sender: FDA-Public Use
  Company Number: FR-JNJFOC-20140104447

PATIENT
  Sex: 0

DRUGS (5)
  1. DOXORUBICIN [Suspect]
     Indication: BREAST CANCER
     Route: 042
  2. CYCLOPHOSPHAMIDE [Suspect]
     Indication: BREAST CANCER
     Route: 065
  3. 5-FLUOROURACIL [Concomitant]
     Indication: BREAST CANCER
     Dosage: OVER 5 CONSECUTIVE DAYS
     Route: 042
  4. VINORELBINE [Concomitant]
     Indication: BREAST CANCER
     Dosage: ON DAYS 1 AND 6
     Route: 042
  5. RADIOTHERAPY [Concomitant]
     Indication: BREAST CANCER
     Route: 065

REACTIONS (2)
  - Skin toxicity [Unknown]
  - Mucosal inflammation [Unknown]
